FAERS Safety Report 11357014 (Version 1)
Quarter: 2015Q3

REPORT INFORMATION
  Report Type: Spontaneous
  Country: US (occurrence: US)
  Receive Date: 20150803
  Receipt Date: 20150803
  Transmission Date: 20151125
  Serious: No
  Sender: FDA-Public Use
  Company Number: US-ELI_LILLY_AND_COMPANY-US201306005578

PATIENT
  Sex: Female

DRUGS (2)
  1. ZYPREXA [Suspect]
     Active Substance: OLANZAPINE
     Indication: ANXIETY
     Dosage: 1 DF, UNK
     Dates: start: 201303, end: 20130531
  2. ZYPREXA [Suspect]
     Active Substance: OLANZAPINE
     Indication: DECREASED APPETITE

REACTIONS (7)
  - Fatigue [Unknown]
  - Drug withdrawal syndrome [Unknown]
  - Off label use [Unknown]
  - Hot flush [Recovering/Resolving]
  - Tremor [Unknown]
  - Dry mouth [Unknown]
  - Nervousness [Unknown]
